FAERS Safety Report 9049444 (Version 1)
Quarter: 2013Q1

REPORT INFORMATION
  Report Type: Spontaneous
  Country: US (occurrence: US)
  Receive Date: 20130205
  Receipt Date: 20130205
  Transmission Date: 20140127
  Serious: Yes (Hospitalization)
  Sender: FDA-Public Use
  Company Number: US-GLAXOSMITHKLINE-A0829385A

PATIENT
  Sex: Male

DRUGS (4)
  1. AVANDIA [Suspect]
     Indication: DIABETES MELLITUS
     Route: 048
     Dates: start: 2003, end: 200708
  2. GLIPIZIDE [Concomitant]
  3. GLUCOPHAGE [Concomitant]
  4. OMEPRAZOLE [Concomitant]

REACTIONS (2)
  - Cardiac failure congestive [Unknown]
  - Cardiac operation [Unknown]
